FAERS Safety Report 4291763-7 (Version None)
Quarter: 2004Q1

REPORT INFORMATION
  Report Type: 
  Country: None (occurrence: None)
  Receive Date: 20040211
  Receipt Date: 20030226
  Transmission Date: 20041129
  Serious: No
  Sender: FDA-Public Use
  Company Number: US-GLAXOSMITHKLINE-A0398934A

PATIENT
  Sex: Female

DRUGS (3)
  1. IMITREX [Suspect]
     Route: 058
  2. IMITREX [Suspect]
     Indication: MIGRAINE
     Dosage: 100MG UNKNOWN
     Route: 048
  3. TYLENOL (CAPLET) [Concomitant]
     Indication: HEADACHE

REACTIONS (4)
  - CHEST PAIN [None]
  - DYSPHAGIA [None]
  - INJECTION SITE BURNING [None]
  - INJECTION SITE PAIN [None]
